FAERS Safety Report 4791579-9 (Version None)
Quarter: 2005Q4

REPORT INFORMATION
  Report Type: 
  Country: None (occurrence: None)
  Receive Date: 20051007
  Receipt Date: 20050404
  Transmission Date: 20060501
  Serious: No
  Sender: FDA-Public Use
  Company Number: US-BRISTOL-MYERS SQUIBB COMPANY-12924932

PATIENT

DRUGS (1)
  1. AVAPRO [Suspect]

REACTIONS (1)
  - ALOPECIA [None]
